FAERS Safety Report 7309503-3 (Version None)
Quarter: 2011Q1

REPORT INFORMATION
  Report Type: 
  Country: None (occurrence: None)
  Receive Date: 20110223
  Receipt Date: 20110214
  Transmission Date: 20110831
  Serious: Yes (Other)
  Sender: FDA-Public Use
  Company Number: JP-AMGEN-JPNCT2010009643

PATIENT
  Age: 62 Year
  Sex: Male
  Weight: 57 kg

DRUGS (17)
  1. OXYCONTIN [Concomitant]
     Dosage: UNK
     Route: 048
  2. PYDOXAL [Concomitant]
     Dosage: UNK
     Route: 048
  3. OXINORM                            /00045603/ [Concomitant]
     Dosage: UNK
     Route: 048
  4. PARIET [Concomitant]
     Dosage: UNK
     Route: 048
  5. FLUOROURACIL [Concomitant]
     Indication: COLORECTAL CANCER
     Route: 041
     Dates: start: 20100729
  6. PANITUMUMAB [Suspect]
     Indication: COLORECTAL CANCER
     Dosage: 5.3 MG/KG, Q2WK
     Route: 041
     Dates: start: 20100729
  7. IRINOTECAN HYDROCHLORIDE [Concomitant]
     Indication: COLORECTAL CANCER
     Route: 041
     Dates: start: 20100729
  8. CALCIUM LEVOFOLINATE [Concomitant]
     Indication: COLORECTAL CANCER
     Route: 041
     Dates: start: 20100729
  9. VOLTAREN [Concomitant]
     Route: 048
  10. ZOPICOOL [Concomitant]
     Dosage: UNK
     Route: 048
  11. CETUXIMAB [Concomitant]
     Indication: COLORECTAL CANCER
     Dosage: UNK
     Route: 041
     Dates: start: 20100401, end: 20100701
  12. CORTICOSTEROIDS [Concomitant]
     Indication: PROPHYLAXIS
     Dosage: UNK
     Route: 065
  13. LORFENAMIN [Concomitant]
     Dosage: UNK
     Route: 048
  14. ANTIHISTAMINES [Concomitant]
     Indication: PROPHYLAXIS
     Dosage: UNK
     Route: 065
  15. KYTRIL [Concomitant]
     Dosage: UNK
     Route: 042
  16. DECADRON [Concomitant]
     Dosage: UNK
     Route: 042
  17. MYSLEE [Concomitant]
     Dosage: UNK
     Route: 048

REACTIONS (6)
  - HEPATIC FUNCTION ABNORMAL [None]
  - ELECTROLYTE IMBALANCE [None]
  - ABDOMINAL ABSCESS [None]
  - DEHYDRATION [None]
  - ANAEMIA [None]
  - DERMATITIS ACNEIFORM [None]
